FAERS Safety Report 5166303-0 (Version None)
Quarter: 2006Q4

REPORT INFORMATION
  Report Type: 
  Country: None (occurrence: None)
  Receive Date: 20061129
  Receipt Date: 20061114
  Transmission Date: 20070319
  Serious: Yes (Hospitalization)
  Sender: FDA-Public Use
  Company Number: 2006002167

PATIENT
  Age: 82 Year
  Sex: Female

DRUGS (2)
  1. TARCEVA [Suspect]
     Indication: BRONCHIOLOALVEOLAR CARCINOMA
     Dosage: 150 MG, ORAL
     Route: 048
     Dates: start: 20060701
  2. WARFARIN SODIUM [Concomitant]

REACTIONS (3)
  - IMPAIRED HEALING [None]
  - SKIN INFECTION [None]
  - URINARY TRACT INFECTION [None]
